FAERS Safety Report 14823648 (Version 2)
Quarter: 2018Q2

REPORT INFORMATION
  Report Type: Report from Study
  Country: US (occurrence: US)
  Receive Date: 20180428
  Receipt Date: 20180523
  Transmission Date: 20180711
  Serious: Yes (Other)
  Sender: FDA-Public Use
  Company Number: US-TEVA-2018-US-886328

PATIENT
  Age: 69 Year
  Sex: Female

DRUGS (1)
  1. COPAXONE [Suspect]
     Active Substance: GLATIRAMER ACETATE
     Indication: MULTIPLE SCLEROSIS
     Route: 058
     Dates: start: 20130805

REACTIONS (8)
  - Dyspnoea [Unknown]
  - Heart rate increased [Unknown]
  - Flushing [Unknown]
  - Productive cough [Unknown]
  - Adverse drug reaction [Recovered/Resolved]
  - Supraventricular tachycardia [Unknown]
  - Nasopharyngitis [Unknown]
  - Pulmonary congestion [Unknown]

NARRATIVE: CASE EVENT DATE: 20180416
